FAERS Safety Report 8088641-4 (Version None)
Quarter: 2012Q1

REPORT INFORMATION
  Report Type: 
  Country: None (occurrence: None)
  Receive Date: 20120128
  Receipt Date: 20110429
  Transmission Date: 20120608
  Serious: No
  Sender: FDA-Public Use
  Company Number: US-ABBOTT-11P-163-0723403-00

PATIENT
  Sex: Female
  Weight: 108.05 kg

DRUGS (20)
  1. BIOTIN [Concomitant]
     Indication: VITAMIN SUPPLEMENTATION
  2. CHROMIUM CHLORIDE [Concomitant]
     Indication: MINERAL SUPPLEMENTATION
  3. SAME [Concomitant]
     Indication: SUPPLEMENTATION THERAPY
  4. METHOTREXATE [Suspect]
     Indication: PSORIATIC ARTHROPATHY
     Route: 048
  5. RED RICE YEAST [Concomitant]
     Indication: PHYTOTHERAPY
  6. LUGOLS SOLUTION 5% [Concomitant]
     Indication: SUPPLEMENTATION THERAPY
  7. HUMIRA [Suspect]
     Indication: FIBROMYALGIA
  8. METHOTREXATE [Suspect]
     Indication: FIBROMYALGIA
  9. HUMIRA [Suspect]
     Indication: PSORIATIC ARTHROPATHY
  10. METHOTREXATE [Suspect]
     Indication: PUSTULAR PSORIASIS
     Route: 048
  11. ASCORBIC ACID [Concomitant]
     Indication: VITAMIN SUPPLEMENTATION
  12. PHENOGREEK [Concomitant]
     Indication: PHYTOTHERAPY
  13. VITAMIN B-12 [Concomitant]
     Indication: VITAMIN SUPPLEMENTATION
  14. HUMIRA [Suspect]
     Indication: PUSTULAR PSORIASIS
     Dosage: LOT NUMBER AND EXPIRATION WERE UNAVAILABLE.
     Route: 058
  15. FOLIC ACID [Concomitant]
     Indication: PRODUCT USED FOR UNKNOWN INDICATION
     Route: 048
  16. ZINC SULFATE [Concomitant]
     Indication: MINERAL SUPPLEMENTATION
  17. CINNAMON [Concomitant]
     Indication: PHYTOTHERAPY
  18. FISH OIL [Concomitant]
     Indication: SUPPLEMENTATION THERAPY
  19. VITAMIN D [Concomitant]
     Indication: VITAMIN SUPPLEMENTATION
  20. LEUCINE [Concomitant]
     Indication: SUPPLEMENTATION THERAPY

REACTIONS (2)
  - LOW DENSITY LIPOPROTEIN INCREASED [None]
  - ALOPECIA [None]
